FAERS Safety Report 8500063-8 (Version None)
Quarter: 2012Q3

REPORT INFORMATION
  Report Type: 
  Country: None (occurrence: None)
  Receive Date: 20120710
  Receipt Date: 20120629
  Transmission Date: 20120928
  Serious: Yes (Hospitalization)
  Sender: FDA-Public Use
  Company Number: JP-VERTEX PHARMACEUTICALS INC.-AE-2012-009773

PATIENT
  Age: 56 Year
  Sex: Female

DRUGS (15)
  1. RIBAVIRIN [Concomitant]
     Indication: HEPATITIS C
     Route: 048
     Dates: start: 20120510, end: 20120531
  2. ATELEC [Concomitant]
     Route: 048
  3. TELAVIC (TELAPREVIR) [Suspect]
     Route: 048
     Dates: start: 20120615
  4. RIBAVIRIN [Concomitant]
     Route: 048
     Dates: start: 20120615
  5. FAMOTIDINE [Concomitant]
     Route: 048
  6. PEGINTERFERON ALFA-2B [Concomitant]
     Indication: HEPATITIS C
     Route: 058
     Dates: start: 20120510, end: 20120531
  7. JANUVIA [Concomitant]
     Route: 048
  8. ALOSENN [Concomitant]
     Route: 048
  9. METFORMIN HCL [Concomitant]
     Route: 048
  10. TELAVIC (TELAPREVIR) [Suspect]
     Route: 048
     Dates: start: 20120601, end: 20120614
  11. GLUBES [Concomitant]
     Route: 048
  12. RIBAVIRIN [Concomitant]
     Route: 048
     Dates: start: 20120601, end: 20120614
  13. PEGINTERFERON ALFA-2B [Concomitant]
     Route: 058
     Dates: start: 20120601
  14. OLMESARTAN MEDOXOMIL [Concomitant]
     Route: 048
  15. TELAVIC (TELAPREVIR) [Suspect]
     Indication: HEPATITIS C
     Route: 048
     Dates: start: 20120510, end: 20120531

REACTIONS (2)
  - DECREASED APPETITE [None]
  - ANAEMIA [None]
